FAERS Safety Report 4825045-9 (Version None)
Quarter: 2005Q4

REPORT INFORMATION
  Report Type: 
  Country: None (occurrence: None)
  Receive Date: 20051109
  Receipt Date: 20051109
  Transmission Date: 20060501
  Serious: Yes (Hospitalization)
  Sender: FDA-Public Use
  Company Number: None

PATIENT
  Sex: Female
  Weight: 43.3 kg

DRUGS (1)
  1. ZETIA [Suspect]
     Indication: TYPE IIA HYPERLIPIDAEMIA
     Dates: start: 20030521, end: 20050701

REACTIONS (4)
  - CARDIAC DISORDER [None]
  - PANCREATIC CYST [None]
  - PANCREATIC DUCT DILATATION [None]
  - PANCREATIC NEOPLASM [None]
